FAERS Safety Report 7371042-1 (Version None)
Quarter: 2011Q1

REPORT INFORMATION
  Report Type: 
  Country: None (occurrence: None)
  Receive Date: 20110318
  Receipt Date: 20110318
  Transmission Date: 20110831
  Serious: Yes (Life-Threatening)
  Sender: FDA-Public Use
  Company Number: None

PATIENT
  Age: 19 Year
  Sex: Male

DRUGS (1)
  1. PREZISTA [Suspect]
     Indication: ACQUIRED IMMUNODEFICIENCY SYNDROME
     Dosage: 1 TABLET EVERY 12 HOURS PO
     Route: 048
     Dates: start: 20110221, end: 20110223

REACTIONS (2)
  - STEVENS-JOHNSON SYNDROME [None]
  - WHEEZING [None]
